FAERS Safety Report 23156338 (Version 1)
Quarter: 2023Q4

REPORT INFORMATION
  Report Type: Report from Study
  Country: DE (occurrence: DE)
  Receive Date: 20231107
  Receipt Date: 20231107
  Transmission Date: 20240109
  Serious: Yes (Hospitalization, Other)
  Sender: FDA-Public Use
  Company Number: DE-ABBVIE-5479528

PATIENT
  Age: 60 Year
  Sex: Male
  Weight: 99 kg

DRUGS (2)
  1. HUMIRA [Suspect]
     Active Substance: ADALIMUMAB
     Indication: Axial spondyloarthritis
     Dosage: FORM STRENGTH 40 MILLIGRAM
     Route: 058
     Dates: start: 20110715, end: 202306
  2. HUMIRA [Suspect]
     Active Substance: ADALIMUMAB
     Indication: Ankylosing spondylitis

REACTIONS (5)
  - Open fracture [Recovering/Resolving]
  - Inflammation [Recovered/Resolved]
  - Myocardial infarction [Recovered/Resolved]
  - Accident [Recovering/Resolving]
  - Ankle operation [Recovered/Resolved]

NARRATIVE: CASE EVENT DATE: 20230601
